FAERS Safety Report 11637788 (Version 3)
Quarter: 2015Q4

REPORT INFORMATION
  Report Type: Report from Study
  Country: JP (occurrence: JP)
  Receive Date: 20151016
  Receipt Date: 20151030
  Transmission Date: 20160304
  Serious: Yes (Hospitalization)
  Sender: FDA-Public Use
  Company Number: JP-PFIZER INC-2015346017

PATIENT
  Age: 35 Year
  Sex: Male
  Weight: 62 kg

DRUGS (13)
  1. DOXORUBICIN [Suspect]
     Active Substance: DOXORUBICIN
     Indication: LIPOSARCOMA
     Dosage: 75 MG/M2, DAY 1 OF 21 DAYS CYCLE
     Route: 042
     Dates: start: 20150714, end: 20150714
  2. OLARATUMAB [Suspect]
     Active Substance: OLARATUMAB
     Dosage: 10 MG/KG, CYCLICAL
     Route: 042
     Dates: start: 20150804, end: 20150915
  3. PREGABALIN. [Concomitant]
     Active Substance: PREGABALIN
     Indication: CANCER PAIN
     Dosage: UNK
     Dates: start: 20150623
  4. CELECOXIB. [Concomitant]
     Active Substance: CELECOXIB
     Indication: CANCER PAIN
     Dosage: UNK
     Dates: start: 20150623
  5. CIPROFLOXACIN HYDROCHLORIDE. [Concomitant]
     Active Substance: CIPROFLOXACIN HYDROCHLORIDE
     Indication: UPPER RESPIRATORY TRACT INFECTION
     Dosage: UNK
     Dates: start: 20150908
  6. OLARATUMAB [Suspect]
     Active Substance: OLARATUMAB
     Indication: LIPOSARCOMA
     Dosage: 15 MG/KG, DAYS 1 AND 8 OF 21 DAYS CYCLE
     Route: 042
     Dates: start: 20150714, end: 20150721
  7. SENNOSIDA A + B [Concomitant]
     Indication: CONSTIPATION
     Dosage: UNK
     Dates: start: 20150623
  8. GRANISETRON HYDROCHLORIDE. [Concomitant]
     Active Substance: GRANISETRON HYDROCHLORIDE
     Indication: PROPHYLAXIS
     Dosage: UNK
     Dates: start: 20150806
  9. OLARATUMAB [Suspect]
     Active Substance: OLARATUMAB
     Dosage: UNK
     Dates: end: 20151002
  10. DOXORUBICIN [Suspect]
     Active Substance: DOXORUBICIN
     Dosage: 60 MG/M2, CYCLICAL
     Route: 042
     Dates: start: 20150804, end: 20150915
  11. MAGNESIUM OXIDE. [Concomitant]
     Active Substance: MAGNESIUM OXIDE
     Indication: CONSTIPATION
     Dosage: UNK
     Dates: start: 20150623
  12. DOXORUBICIN [Suspect]
     Active Substance: DOXORUBICIN
     Dosage: UNK
     Dates: end: 20151002
  13. OXYCODONE HYDROCHLORIDE. [Concomitant]
     Active Substance: OXYCODONE HYDROCHLORIDE
     Indication: CANCER PAIN
     Dosage: UNK
     Dates: start: 20150623

REACTIONS (1)
  - Lung infection [Recovered/Resolved]

NARRATIVE: CASE EVENT DATE: 20151002
